FAERS Safety Report 6914686-0 (Version None)
Quarter: 2010Q3

REPORT INFORMATION
  Report Type: 
  Country: None (occurrence: None)
  Receive Date: 20100805
  Receipt Date: 20100805
  Transmission Date: 20110219
  Serious: Yes (Hospitalization)
  Sender: FDA-Public Use
  Company Number: None

PATIENT
  Sex: Female
  Weight: 48.5 kg

DRUGS (1)
  1. INFERGEN [Suspect]
     Indication: HEPATITIS C
     Dosage: 15MCG DAILY SUBCUTANEOUS
     Route: 058
     Dates: start: 20100501, end: 20100701

REACTIONS (7)
  - DRUG INEFFECTIVE [None]
  - ESCHAR [None]
  - INJECTION SITE EROSION [None]
  - INJECTION SITE ERYTHEMA [None]
  - INJECTION SITE INFECTION [None]
  - INJECTION SITE PAIN [None]
  - INJECTION SITE ULCER [None]
